FAERS Safety Report 6756830-4 (Version None)
Quarter: 2010Q2

REPORT INFORMATION
  Report Type: 
  Country: None (occurrence: None)
  Receive Date: 20100604
  Receipt Date: 20100524
  Transmission Date: 20101027
  Serious: Yes (Other)
  Sender: FDA-Public Use
  Company Number: PHEH2009US01397

PATIENT
  Sex: Male

DRUGS (33)
  1. ZOMETA [Suspect]
     Indication: MULTIPLE MYELOMA
     Dosage: UNK
     Dates: start: 20010101, end: 20050101
  2. AREDIA [Suspect]
     Indication: MULTIPLE MYELOMA
     Dosage: 90 MG, QMO
     Dates: start: 19971001, end: 20080601
  3. VELCADE [Concomitant]
  4. DEXAMETHASONE [Concomitant]
  5. DOXIL [Concomitant]
  6. BORTEZOMIB [Concomitant]
  7. PROCHLORPERAZINE [Concomitant]
  8. ACETAMINOPHEN [Concomitant]
  9. OXYCODONE [Concomitant]
  10. CHEMOTHERAPEUTICS NOS [Concomitant]
  11. REVLIMID [Concomitant]
  12. HYZAAR [Suspect]
  13. NASACORT [Concomitant]
  14. ALLEGRA [Concomitant]
  15. ZITHROMAX [Concomitant]
  16. DECADRON [Concomitant]
  17. AVAPRO [Concomitant]
  18. HYDROCHLOROTHIAZIDE [Concomitant]
  19. ALPRAZOLAM [Concomitant]
  20. AVALIDE [Concomitant]
     Dosage: 150 MG, UNK
  21. VIAGRA [Concomitant]
  22. PERIOGARD [Concomitant]
  23. BETAMETHASONE [Concomitant]
  24. PRILOSEC [Concomitant]
     Dosage: 20 MG, UNK
  25. BACTRIM [Concomitant]
  26. OSCAL [Concomitant]
  27. NEUPOGEN [Concomitant]
     Dosage: 10 MG, UNK
  28. CLEOCIN [Concomitant]
  29. LYRICA [Concomitant]
  30. DOLASETRON [Concomitant]
  31. ROCEPHIN [Concomitant]
  32. MESNA [Concomitant]
  33. VIOXX [Concomitant]

REACTIONS (69)
  - ANAEMIA [None]
  - ANXIETY [None]
  - ARTERIOSCLEROSIS CORONARY ARTERY [None]
  - BLOOD PRESSURE INCREASED [None]
  - BODY TEMPERATURE INCREASED [None]
  - BODY TINEA [None]
  - BONE DISORDER [None]
  - BONE LESION [None]
  - BONE OPERATION [None]
  - CATARACT [None]
  - DECREASED APPETITE [None]
  - DEEP VEIN THROMBOSIS [None]
  - DEFORMITY [None]
  - DEVICE RELATED INFECTION [None]
  - DIVERTICULUM [None]
  - ENDODONTIC PROCEDURE [None]
  - EYE LASER SURGERY [None]
  - FIBROUS HISTIOCYTOMA [None]
  - GASTRITIS [None]
  - HAEMANGIOMA OF LIVER [None]
  - HAEMATURIA [None]
  - HAEMORRHAGE [None]
  - HYPERKERATOSIS [None]
  - HYPOPHAGIA [None]
  - IMMUNOSUPPRESSION [None]
  - IMPAIRED HEALING [None]
  - INJURY [None]
  - INTERVERTEBRAL DISC COMPRESSION [None]
  - INTERVERTEBRAL DISC PROTRUSION [None]
  - INTRAOCULAR LENS IMPLANT [None]
  - LEUKOPENIA [None]
  - LUMBAR SPINAL STENOSIS [None]
  - LYMPHADENOPATHY [None]
  - MASTICATION DISORDER [None]
  - MULTIPLE MYELOMA [None]
  - MUSCULOSKELETAL PAIN [None]
  - NAUSEA [None]
  - NEPHROLITHIASIS [None]
  - NEUROPATHY PERIPHERAL [None]
  - ONYCHOMYCOSIS [None]
  - ORAL HERPES [None]
  - ORTHOSTATIC HYPOTENSION [None]
  - OSTEONECROSIS OF JAW [None]
  - OSTEOPENIA [None]
  - OSTEOPOROSIS [None]
  - PAIN [None]
  - PAIN IN JAW [None]
  - PANCREATIC CYST [None]
  - PANCREATIC MASS [None]
  - PRODUCTIVE COUGH [None]
  - PROTEIN URINE [None]
  - PURULENT DISCHARGE [None]
  - RASH [None]
  - RASH ERYTHEMATOUS [None]
  - RASH PRURITIC [None]
  - RENAL FAILURE ACUTE [None]
  - SENSORY LOSS [None]
  - SEXUAL DYSFUNCTION [None]
  - SINUSITIS [None]
  - SKIN HYPERPIGMENTATION [None]
  - SKIN LESION [None]
  - SPINAL COMPRESSION FRACTURE [None]
  - SPINAL OSTEOARTHRITIS [None]
  - SWELLING FACE [None]
  - TONGUE ULCERATION [None]
  - TOOTH LOSS [None]
  - ULCER [None]
  - UPPER RESPIRATORY TRACT INFECTION [None]
  - VOMITING [None]
